FAERS Safety Report 6151499-4 (Version None)
Quarter: 2009Q2

REPORT INFORMATION
  Report Type: 
  Country: None (occurrence: None)
  Receive Date: 20090410
  Receipt Date: 20090401
  Transmission Date: 20091009
  Serious: Yes (Death, Hospitalization)
  Sender: FDA-Public Use
  Company Number: JP-JNJFOC-20090307415

PATIENT
  Sex: Female
  Weight: 44 kg

DRUGS (14)
  1. REMICADE [Suspect]
     Dosage: 34TH DOSE
     Route: 042
  2. REMICADE [Suspect]
     Dosage: PATIENT RECEIVED 32 INFUSIONS WITH UNSPECIFIED DATES.
     Route: 042
  3. REMICADE [Suspect]
     Indication: RHEUMATOID ARTHRITIS
     Route: 042
  4. RHEUMATREX [Concomitant]
     Indication: RHEUMATOID ARTHRITIS
     Route: 048
  5. GLAKAY [Concomitant]
     Indication: OSTEOPOROSIS
     Route: 048
  6. FOLIAMIN [Concomitant]
     Route: 048
  7. PREDONINE [Concomitant]
     Indication: RHEUMATOID ARTHRITIS
  8. DEPAS [Concomitant]
     Indication: INSOMNIA
     Route: 048
  9. ARTIZ DISPO [Concomitant]
     Indication: RHEUMATOID ARTHRITIS
  10. ALENDRONATE SODIUM [Concomitant]
     Indication: OSTEOPOROSIS
     Route: 048
  11. TAKEPRON [Concomitant]
     Route: 048
  12. MAGNESIUM OXIDE [Concomitant]
     Indication: CONSTIPATION
     Route: 048
  13. RHINDERON [Concomitant]
     Indication: RHEUMATOID ARTHRITIS
     Route: 048
  14. MOHRUS TAPE L [Concomitant]
     Indication: RHEUMATOID ARTHRITIS
     Dosage: ROUTE IS ^OD^

REACTIONS (2)
  - DISSEMINATED INTRAVASCULAR COAGULATION [None]
  - LYMPHOMA [None]
